FAERS Safety Report 9728014 (Version 1)
Quarter: 2013Q4

REPORT INFORMATION
  Report Type: Spontaneous
  Country: US (occurrence: US)
  Receive Date: 20131204
  Receipt Date: 20131204
  Transmission Date: 20140711
  Serious: Yes (Hospitalization, Disabling, Other)
  Sender: FDA-Public Use
  Company Number: US-009507513-1311USA011535

PATIENT
  Age: 46 Year
  Sex: Male

DRUGS (13)
  1. ZOCOR [Suspect]
     Indication: BLOOD CHOLESTEROL INCREASED
     Dosage: 1 DF, QD
     Route: 048
     Dates: end: 201012
  2. ZOCOR [Suspect]
     Dosage: 1 DF, QD
     Route: 048
     Dates: start: 201105
  3. ZOCOR [Suspect]
     Dosage: 1 DF, QD
     Route: 048
  4. RITUXAN [Suspect]
     Indication: GRANULOMATOSIS WITH POLYANGIITIS
     Dosage: 10 MG/ML, Q6M
     Route: 042
  5. ZOLOFT [Suspect]
     Indication: DEPRESSION
     Dosage: 50 MG, QD
     Dates: end: 201112
  6. ZOLOFT [Suspect]
     Dosage: UNK
  7. MEPRON [Suspect]
     Indication: GRANULOMATOSIS WITH POLYANGIITIS
     Dosage: 1500 MG, 2 TEA SPOON PER DAY
     Route: 048
     Dates: start: 201105
  8. MEPRON [Suspect]
     Dosage: 750 MG, QD
     Route: 048
     Dates: start: 201207
  9. DILTIAZEM HYDROCHLORIDE [Suspect]
     Dosage: 240 MG, QD
     Route: 048
  10. VENOFER [Concomitant]
  11. ASPIRIN [Concomitant]
     Dosage: 81 MG, UNK
     Dates: start: 201310
  12. PREDNISONE [Concomitant]
     Dosage: UNK
     Dates: start: 2003, end: 2012
  13. SEROQUEL [Concomitant]
     Indication: SLEEP APNOEA SYNDROME

REACTIONS (10)
  - Convulsion [Recovered/Resolved]
  - Disability [Recovering/Resolving]
  - Mental disorder [Recovering/Resolving]
  - Therapeutic response unexpected [Recovering/Resolving]
  - Diarrhoea [Recovering/Resolving]
  - Arthralgia [Recovering/Resolving]
  - Fatigue [Recovering/Resolving]
  - Abdominal discomfort [Unknown]
  - Malaise [Recovering/Resolving]
  - Vomiting [Recovering/Resolving]
